FAERS Safety Report 8819922 (Version 1)
Quarter: 2012Q4

REPORT INFORMATION
  Report Type: 
  Country: US (occurrence: US)
  Receive Date: 20121001
  Receipt Date: 20121001
  Transmission Date: 20130627
  Serious: No
  Sender: FDA-Public Use
  Company Number: US-BAYER-2012-097632

PATIENT
  Sex: Female

DRUGS (1)
  1. FINACEA [Suspect]
     Dosage: UNK
     Route: 061

REACTIONS (7)
  - Burning sensation [None]
  - Pruritus [None]
  - Eczema [None]
  - Dry skin [None]
  - Melanocytic naevus [None]
  - Rosacea [None]
  - Facial pain [None]
